FAERS Safety Report 4941187-1 (Version None)
Quarter: 2006Q1

REPORT INFORMATION
  Report Type: 
  Country: None (occurrence: None)
  Receive Date: 20060310
  Receipt Date: 20060310
  Transmission Date: 20060701
  Serious: Yes (Other)
  Sender: FDA-Public Use
  Company Number: None

PATIENT

DRUGS (1)
  1. NEXIUM [Suspect]
     Dates: start: 20060206, end: 20060212

REACTIONS (2)
  - DIARRHOEA [None]
  - FEAR [None]
